FAERS Safety Report 6606457-X (Version None)
Quarter: 2010Q1

REPORT INFORMATION
  Report Type: 
  Country: None (occurrence: None)
  Receive Date: 20100226
  Receipt Date: 20100215
  Transmission Date: 20100710
  Serious: Yes (Other)
  Sender: FDA-Public Use
  Company Number: PHHY2009DE48852

PATIENT
  Sex: Female

DRUGS (1)
  1. PROVAS MAXX [Suspect]
     Dosage: 0.5 DF, QD
     Route: 048
     Dates: start: 20090901

REACTIONS (7)
  - COLITIS [None]
  - DIARRHOEA [None]
  - ECZEMA [None]
  - GASTROINTESTINAL DISORDER [None]
  - LIVER DISORDER [None]
  - PRURITUS [None]
  - TREATMENT NONCOMPLIANCE [None]
